FAERS Safety Report 14028457 (Version 1)
Quarter: 2017Q3

REPORT INFORMATION
  Report Type: Not Available
  Country: US (occurrence: US)
  Receive Date: 20170930
  Receipt Date: 20170930
  Transmission Date: 20171128
  Serious: No
  Sender: FDA-Public Use
  Company Number: US-NEUROCRINE BIOSCIENCES INC.-2017NBI00735

PATIENT
  Age: 51 Year
  Sex: Male

DRUGS (16)
  1. LISINOPRIL. [Concomitant]
     Active Substance: LISINOPRIL
  2. MULTIVITAMIN [Concomitant]
     Active Substance: VITAMINS
  3. THIOTHIXENE. [Concomitant]
     Active Substance: THIOTHIXENE
  4. LEXAPRO [Concomitant]
     Active Substance: ESCITALOPRAM OXALATE
  5. SUMATRIPTAN. [Concomitant]
     Active Substance: SUMATRIPTAN
  6. INGREZZA [Suspect]
     Active Substance: VALBENAZINE
     Route: 048
     Dates: start: 20170608, end: 20170814
  7. CLONAZEPAM. [Concomitant]
     Active Substance: CLONAZEPAM
  8. AQUAPHILIC BENZTROPINE [Concomitant]
  9. DOCUSATE [Concomitant]
     Active Substance: DOCUSATE
  10. LOPERAMIDE [Concomitant]
     Active Substance: LOPERAMIDE
  11. TYLENOL [Concomitant]
     Active Substance: ACETAMINOPHEN
  12. OLANZAPINE. [Concomitant]
     Active Substance: OLANZAPINE
  13. LACTULOSE. [Concomitant]
     Active Substance: LACTULOSE
  14. TRIAMCINOLONE [Concomitant]
     Active Substance: TRIAMCINOLONE
  15. INGREZZA [Suspect]
     Active Substance: VALBENAZINE
     Indication: PRODUCT USED FOR UNKNOWN INDICATION
     Route: 048
     Dates: start: 20170601, end: 20170607
  16. CHLORHEXIDINE [Concomitant]
     Active Substance: CHLORHEXIDINE

REACTIONS (2)
  - Drooling [Unknown]
  - Tremor [Unknown]

NARRATIVE: CASE EVENT DATE: 20170714
